FAERS Safety Report 8475574-4 (Version None)
Quarter: 2012Q2

REPORT INFORMATION
  Report Type: 
  Country: None (occurrence: None)
  Receive Date: 20120628
  Receipt Date: 20120619
  Transmission Date: 20120825
  Serious: Yes (Other)
  Sender: FDA-Public Use
  Company Number: US-ASTRAZENECA-2012SE28406

PATIENT
  Age: 53 Year
  Sex: Male

DRUGS (3)
  1. NEXIUM [Suspect]
     Indication: BARRETT'S OESOPHAGUS
     Route: 048
  2. PROTONIX [Suspect]
     Route: 065
  3. PRILOSEC [Suspect]
     Route: 048

REACTIONS (9)
  - HIATUS HERNIA [None]
  - ERUCTATION [None]
  - ABDOMINAL DISCOMFORT [None]
  - DRUG DOSE OMISSION [None]
  - MALAISE [None]
  - VOMITING [None]
  - DRUG INEFFECTIVE [None]
  - OFF LABEL USE [None]
  - ULCER HAEMORRHAGE [None]
